FAERS Safety Report 10268160 (Version 1)
Quarter: 2014Q2

REPORT INFORMATION
  Report Type: Spontaneous
  Country: US (occurrence: US)
  Receive Date: 20140630
  Receipt Date: 20140630
  Transmission Date: 20141212
  Serious: Yes (Death, Hospitalization)
  Sender: FDA-Public Use
  Company Number: US-ACTELION-A-US2014-100696

PATIENT
  Age: 67 Year
  Sex: Female

DRUGS (9)
  1. OPSUMIT [Suspect]
     Indication: PULMONARY HYPERTENSION
     Dosage: 10 MG, UNK
     Route: 048
     Dates: start: 20140321
  2. TRAZODONE [Concomitant]
  3. ASPIRIN [Concomitant]
  4. HYDROCHLOROTHIAZIDE [Concomitant]
  5. GABAPENTIN [Concomitant]
  6. DILTIAZEM [Concomitant]
  7. VALSARTAN [Concomitant]
  8. LIPITOR [Concomitant]
  9. SYNTHROID [Concomitant]

REACTIONS (4)
  - Pulmonary hypertension [Fatal]
  - Disease progression [Fatal]
  - Acute respiratory distress syndrome [Unknown]
  - Pneumonia [Unknown]
